FAERS Safety Report 23168921 (Version 1)
Quarter: 2023Q4

REPORT INFORMATION
  Report Type: Spontaneous
  Country: RS (occurrence: RS)
  Receive Date: 20231110
  Receipt Date: 20231110
  Transmission Date: 20240110
  Serious: Yes (Other)
  Sender: FDA-Public Use
  Company Number: RS-JNJFOC-20231101570

PATIENT
  Age: 36 Year
  Sex: Male

DRUGS (5)
  1. RISPERIDONE [Suspect]
     Active Substance: RISPERIDONE
     Indication: Product used for unknown indication
     Route: 065
  2. RISPERIDONE [Suspect]
     Active Substance: RISPERIDONE
     Dosage: 50 MG FOR TWO SUNDAYS.
     Route: 065
  3. RISPERIDONE [Suspect]
     Active Substance: RISPERIDONE
  4. RISPERIDONE [Suspect]
     Active Substance: RISPERIDONE
  5. LORAZEPAM [Suspect]
     Active Substance: LORAZEPAM
     Indication: Somnolence
     Route: 065

REACTIONS (2)
  - Psychotic symptom [Unknown]
  - Libido decreased [Unknown]
